FAERS Safety Report 16205974 (Version 1)
Quarter: 2019Q2

REPORT INFORMATION
  Report Type: Spontaneous
  Country: US (occurrence: US)
  Receive Date: 20190416
  Receipt Date: 20190416
  Transmission Date: 20190711
  Serious: Yes (Death)
  Sender: FDA-Public Use
  Company Number: None

PATIENT
  Age: 50 Year
  Sex: Female

DRUGS (22)
  1. CHLORHEX [Concomitant]
     Active Substance: CHLORHEXIDINE GLUCONATE
  2. CYCLOBENAZPRINE [Concomitant]
     Active Substance: CYCLOBENZAPRINE
  3. NYSTATIN. [Concomitant]
     Active Substance: NYSTATIN
  4. POLYETH GLYC [Concomitant]
     Active Substance: POLYETHYLENE GLYCOLS
  5. FLECTOR [Concomitant]
     Active Substance: DICLOFENAC EPOLAMINE
  6. DULOXETINE. [Concomitant]
     Active Substance: DULOXETINE
  7. AMLODIPINE [Concomitant]
     Active Substance: AMLODIPINE BESYLATE
  8. OXYBUTYNIN. [Concomitant]
     Active Substance: OXYBUTYNIN CHLORIDE
  9. OMPERAZOLE [Concomitant]
     Active Substance: OMEPRAZOLE
  10. FEROSUL [Concomitant]
  11. LYRICA [Concomitant]
     Active Substance: PREGABALIN
  12. LEVOTHYROXIN [Concomitant]
     Active Substance: LEVOTHYROXINE
  13. MINOCYCLINE [Concomitant]
     Active Substance: MINOCYCLINE\MINOCYCLINE HYDROCHLORIDE
  14. BOTOX [Suspect]
     Active Substance: ONABOTULINUMTOXINA
     Indication: ESSENTIAL HYPERTENSION
     Dosage: OTHER FREQUENCY:EVERY 90 DAYS;?
     Route: 030
     Dates: start: 20171212, end: 20190322
  15. CARBAMAZEPIN [Concomitant]
     Active Substance: CARBAMAZEPINE
  16. AMITRIPTYLIN [Concomitant]
     Active Substance: AMITRIPTYLINE
  17. CLINDAMYCIN. [Concomitant]
     Active Substance: CLINDAMYCIN
  18. ESTRADIOL. [Concomitant]
     Active Substance: ESTRADIOL
  19. RANITIDINE. [Concomitant]
     Active Substance: RANITIDINE
  20. AMMONIUM [Concomitant]
  21. MELOXICAM. [Concomitant]
     Active Substance: MELOXICAM
  22. TIZANIDINE. [Concomitant]
     Active Substance: TIZANIDINE

REACTIONS (1)
  - Death [None]

NARRATIVE: CASE EVENT DATE: 20190322
